FAERS Safety Report 23957872 (Version 1)
Quarter: 2024Q2

REPORT INFORMATION
  Report Type: Spontaneous
  Country: GB (occurrence: GB)
  Receive Date: 20240610
  Receipt Date: 20240610
  Transmission Date: 20240716
  Serious: Yes (Hospitalization, Other)
  Sender: FDA-Public Use
  Company Number: None

PATIENT
  Age: 38 Year
  Sex: Female
  Weight: 61 kg

DRUGS (4)
  1. ADALIMUMAB [Suspect]
     Active Substance: ADALIMUMAB\ISOPROPYL ALCOHOL
     Indication: Colitis ulcerative
     Dosage: 40MG WEEKLY
     Route: 058
     Dates: start: 20231005, end: 20240418
  2. PENTASA [Concomitant]
     Active Substance: MESALAMINE
     Indication: Colitis ulcerative
     Route: 065
     Dates: start: 20230101
  3. FERROUS FUMARATE [Concomitant]
     Active Substance: FERROUS FUMARATE
     Indication: Colitis ulcerative
     Route: 065
     Dates: start: 20221023
  4. PREDNISOLONE [Concomitant]
     Active Substance: PREDNISOLONE
     Indication: Colitis ulcerative
     Route: 065
     Dates: start: 20220927, end: 20240403

REACTIONS (10)
  - Pharyngeal swelling [Recovering/Resolving]
  - Burning sensation [Not Recovered/Not Resolved]
  - Pyrexia [Recovering/Resolving]
  - Swelling face [Recovering/Resolving]
  - Swelling face [Recovering/Resolving]
  - Musculoskeletal stiffness [Recovering/Resolving]
  - Eye swelling [Not Recovered/Not Resolved]
  - Rash [Recovered/Resolved]
  - Oesophageal pain [Not Recovered/Not Resolved]
  - Tachycardia [Not Recovered/Not Resolved]

NARRATIVE: CASE EVENT DATE: 20240203
